FAERS Safety Report 17227353 (Version 5)
Quarter: 2020Q1

REPORT INFORMATION
  Report Type: Spontaneous
  Country: CA (occurrence: CA)
  Receive Date: 20200103
  Receipt Date: 20200327
  Transmission Date: 20200409
  Serious: Yes (Other)
  Sender: FDA-Public Use
  Company Number: CA-CELLTRION INC.-2019CA027329

PATIENT

DRUGS (5)
  1. INFLECTRA [Suspect]
     Active Substance: INFLIXIMAB-DYYB
     Dosage: 10 MG/KG (800 MG), 0,2,6 WEEKS THEN EVERY 8 WEEKS
     Route: 042
     Dates: start: 20200116
  2. PREDNISONE. [Concomitant]
     Active Substance: PREDNISONE
  3. INFLECTRA [Suspect]
     Active Substance: INFLIXIMAB-DYYB
     Indication: CROHN^S DISEASE
     Dosage: 10 MG/KG (800 MG), 0,2,6 WEEKS THEN EVERY 8 WEEKS
     Route: 042
     Dates: start: 20191122
  4. INFLECTRA [Suspect]
     Active Substance: INFLIXIMAB-DYYB
     Dosage: 10 MG/KG (800 MG), 0,2,6 WEEKS THEN EVERY 8 WEEKS
     Route: 042
     Dates: start: 20191129
  5. INFLECTRA [Suspect]
     Active Substance: INFLIXIMAB-DYYB
     Dosage: 10 MG/KG (800 MG), 0,2,6 WEEKS THEN EVERY 8 WEEKS
     Route: 042
     Dates: start: 20200311

REACTIONS (9)
  - Off label use [Unknown]
  - Blood pressure fluctuation [Unknown]
  - Drug ineffective [Unknown]
  - Stress [Unknown]
  - Product use issue [Unknown]
  - Condition aggravated [Unknown]
  - Hypertension [Unknown]
  - Product use issue [Unknown]
  - Inappropriate schedule of product administration [Unknown]

NARRATIVE: CASE EVENT DATE: 2019
